FAERS Safety Report 5050675-1 (Version None)
Quarter: 2006Q3

REPORT INFORMATION
  Report Type: 
  Country: None (occurrence: None)
  Receive Date: 20060707
  Receipt Date: 20060621
  Transmission Date: 20061208
  Serious: Yes (Hospitalization)
  Sender: FDA-Public Use
  Company Number: 6023565

PATIENT
  Sex: Male

DRUGS (1)
  1. METHIMAZOLE [Suspect]
     Dosage: 1 IN 1 D TRANSPLACENTAL  DURING FIRST 3 MONTHS AS FOETUS
     Route: 064

REACTIONS (4)
  - APLASIA CUTIS CONGENITA [None]
  - BONE DEVELOPMENT ABNORMAL [None]
  - DRUG EXPOSURE DURING PREGNANCY [None]
  - SKIN LESION [None]
